FAERS Safety Report 14931389 (Version 1)
Quarter: 2018Q2

REPORT INFORMATION
  Report Type: Spontaneous
  Country: FR (occurrence: FR)
  Receive Date: 20180524
  Receipt Date: 20180524
  Transmission Date: 20180711
  Serious: Yes (Other)
  Sender: FDA-Public Use
  Company Number: FR-MERCK KGAA-2048370

PATIENT
  Age: 21 Year
  Sex: Female

DRUGS (1)
  1. NOVOTHYROX [Suspect]
     Active Substance: LEVOTHYROXINE SODIUM
     Indication: PRODUCT USED FOR UNKNOWN INDICATION

REACTIONS (18)
  - Red cell distribution width increased [None]
  - Anger [None]
  - Basophil count increased [None]
  - Blood thyroid stimulating hormone [Recovering/Resolving]
  - Visual impairment [None]
  - Loss of personal independence in daily activities [None]
  - Mood altered [None]
  - Haemoglobin decreased [None]
  - Mean cell haemoglobin concentration decreased [None]
  - Monocyte count decreased [Recovered/Resolved]
  - Impaired driving ability [None]
  - Irritability [None]
  - Haematocrit decreased [None]
  - Oropharyngeal pain [None]
  - Muscle spasms [None]
  - Pruritus [None]
  - Fatigue [None]
  - Mean cell volume decreased [None]

NARRATIVE: CASE EVENT DATE: 20170210
